FAERS Safety Report 10051625 (Version 1)
Quarter: 2014Q2

REPORT INFORMATION
  Report Type: Spontaneous
  Country: IL (occurrence: IL)
  Receive Date: 20140401
  Receipt Date: 20140401
  Transmission Date: 20141212
  Serious: Yes (Other)
  Sender: FDA-Public Use
  Company Number: IL-ALLERGAN-1405764US

PATIENT
  Sex: Female

DRUGS (1)
  1. OZURDEX [Suspect]
     Indication: CHORIORETINITIS
     Dosage: 0.7 MG, SINGLE
     Route: 031

REACTIONS (2)
  - Eye complication associated with device [Unknown]
  - Visual acuity reduced [Unknown]
